FAERS Safety Report 9587644 (Version 2)
Quarter: 2014Q3

REPORT INFORMATION
  Report Type: Spontaneous
  Country: US (occurrence: US)
  Receive Date: 20131003
  Receipt Date: 20140819
  Transmission Date: 20150326
  Serious: Yes (Hospitalization)
  Sender: FDA-Public Use
  Company Number: US-009507513-1310USA000593

PATIENT
  Sex: Female
  Weight: 82.99 kg

DRUGS (1)
  1. NUVARING [Suspect]
     Active Substance: ETHINYL ESTRADIOL\ETONOGESTREL
     Indication: CONTRACEPTION
     Dosage: UNK
     Route: 067
     Dates: start: 200601

REACTIONS (4)
  - Deep vein thrombosis [Unknown]
  - Debridement [Unknown]
  - Arthroscopy [Unknown]
  - Medical device implantation [Unknown]

NARRATIVE: CASE EVENT DATE: 20070706
